FAERS Safety Report 13938233 (Version 3)
Quarter: 2018Q4

REPORT INFORMATION
  Report Type: Spontaneous
  Country: US (occurrence: US)
  Receive Date: 20170905
  Receipt Date: 20181115
  Transmission Date: 20190204
  Serious: Yes (Hospitalization, Other)
  Sender: FDA-Public Use
  Company Number: US-VIFOR (INTERNATIONAL) INC.-VIT-2017-08944

PATIENT
  Age: 84 Year
  Sex: Female

DRUGS (13)
  1. IRON [Concomitant]
     Active Substance: IRON
  2. CALTRATE 600+D [Concomitant]
  3. TOPROL XL [Concomitant]
     Active Substance: METOPROLOL SUCCINATE
  4. CENTRUM [Concomitant]
     Active Substance: VITAMINS
  5. TRAMADOL HCL [Concomitant]
     Active Substance: TRAMADOL HYDROCHLORIDE
  6. KRILL OIL [Concomitant]
     Active Substance: DIETARY SUPPLEMENT
  7. VELTASSA [Suspect]
     Active Substance: PATIROMER
     Indication: HYPERKALAEMIA
     Route: 048
     Dates: start: 20160614
  8. AMLODIPINE BESYLATE. [Concomitant]
     Active Substance: AMLODIPINE BESYLATE
  9. XARELTO [Concomitant]
     Active Substance: RIVAROXABAN
  10. LASIX [Concomitant]
     Active Substance: FUROSEMIDE
  11. CALCIUM 500+D3 [Concomitant]
     Active Substance: CALCIUM CARBONATE\CHOLECALCIFEROL
  12. FUROSEMIDE. [Concomitant]
     Active Substance: FUROSEMIDE
  13. SLEEP AID [Concomitant]
     Active Substance: DIPHENHYDRAMINE HYDROCHLORIDE\DOXYLAMINE SUCCINATE

REACTIONS (2)
  - Fall [Unknown]
  - Pelvic fracture [Unknown]

NARRATIVE: CASE EVENT DATE: 20170821
